FAERS Safety Report 15395107 (Version 5)
Quarter: 2020Q1

REPORT INFORMATION
  Report Type: Spontaneous
  Country: FR (occurrence: FR)
  Receive Date: 20180918
  Receipt Date: 20200207
  Transmission Date: 20200409
  Serious: Yes (Death, Life-Threatening, Hospitalization, Other)
  Sender: FDA-Public Use
  Company Number: FR-ACCORD-071970

PATIENT
  Age: 80 Year
  Sex: Female
  Weight: 50 kg

DRUGS (12)
  1. DIGOXIN. [Suspect]
     Active Substance: DIGOXIN
     Indication: ARRHYTHMIA
     Dosage: 0.25
     Route: 040
     Dates: start: 20170911
  2. LASIX [Suspect]
     Active Substance: FUROSEMIDE
     Indication: CARDIAC FAILURE
     Dosage: 1 GRINDED TABLET, DATE OF LAST ADMINISTRATION 11-SEP-2017, 20MG INTRAVENOUS
     Route: 048
     Dates: start: 20170911
  3. LEVOTHYROX NF [Suspect]
     Active Substance: LEVOTHYROXINE SODIUM
     Indication: HYPOTHYROIDISM
     Dosage: 1 DF, QD,1 GRINDED TABLET LEVOTHYROX NF,ALSO TAKEN 1 DF BY ORAL ROUTE.
     Route: 040
     Dates: start: 20170911
  4. ARIPIPRAZOLE. [Concomitant]
     Active Substance: ARIPIPRAZOLE
  5. PARACETAMOL [Suspect]
     Active Substance: ACETAMINOPHEN
     Indication: PAIN
     Dosage: 500 MILLIGRAM, BID
     Route: 040
     Dates: start: 20170911, end: 20170911
  6. FUROSEMIDE. [Suspect]
     Active Substance: FUROSEMIDE
     Indication: CARDIAC FAILURE
     Dosage: 20 MG, DAILY,DATE OF LAST ADMINISTRATION 11-SEP-2017
     Route: 042
     Dates: start: 20170911
  7. PREDNISONE ARROW [Suspect]
     Active Substance: PREDNISONE
     Indication: DERMATOMYOSITIS
     Dosage: ALSO RECEIVED 1 DOSAGE FORM (1 DF, QD), 45 MG QD INTRAVENOUS, 1 DF ORAL
     Route: 040
     Dates: start: 20170911
  8. CALCIDOSE (CALCIUM CARBONATE) [Suspect]
     Active Substance: CALCIUM CARBONATE
     Indication: OSTEOPOROSIS PROPHYLAXIS
     Dosage: 1 SACHET,ALSO TAKEN BY ORAL ROUTE.
     Route: 040
     Dates: start: 20170911
  9. PARACETAMOL [Suspect]
     Active Substance: ACETAMINOPHEN
     Indication: PAIN
     Dosage: 500 MG, QD,ALSO TAKEN 500MG (CAPSULE, HARD) BY ORAL ROUTE.
     Route: 040
     Dates: start: 20170911
  10. CORDARONE [Suspect]
     Active Substance: AMIODARONE HYDROCHLORIDE
     Indication: ARRHYTHMIA
     Dosage: SCORED TABLET,ALSO TAKEN 200 MG BY ORAL ROUTE.
     Route: 040
     Dates: start: 20170911
  11. ELIQUIS [Suspect]
     Active Substance: APIXABAN
     Indication: THROMBOSIS PROPHYLAXIS
     Dosage: DATE OF LAST ADMINISTRATION 11-SEP-2017, ALSO TAKEN 2.5 MG, ALSO BY ORAL ROUTE.
     Route: 040
     Dates: start: 20170911
  12. METHOTREXATE. [Concomitant]
     Active Substance: METHOTREXATE
     Indication: NEOPLASM
     Dosage: IN COMBINATION WITH THREE CYCLES OF IMMUNOGLOBULINS
     Dates: start: 20170801

REACTIONS (4)
  - Cardio-respiratory arrest [Fatal]
  - Medication error [Fatal]
  - Cardiac arrest [Fatal]
  - Incorrect route of product administration [Fatal]

NARRATIVE: CASE EVENT DATE: 20170911
